FAERS Safety Report 25791870 (Version 1)
Quarter: 2025Q3

REPORT INFORMATION
  Report Type: Spontaneous
  Country: ID (occurrence: ID)
  Receive Date: 20250911
  Receipt Date: 20250911
  Transmission Date: 20251021
  Serious: Yes (Death, Other)
  Sender: SANOFI AVENTIS
  Company Number: ID-DialogSolutions-SAAVPROD-PI819896-C1

PATIENT
  Age: 62 Year
  Sex: Female

DRUGS (6)
  1. DIGOXIN [Suspect]
     Active Substance: DIGOXIN
     Dosage: 0.25 MG, BID
  2. GLIMEPIRIDE [Suspect]
     Active Substance: GLIMEPIRIDE
     Dosage: 2 MG, BID
  3. FUROSEMIDE [Suspect]
     Active Substance: FUROSEMIDE
     Dosage: 20 MG, QD
  4. METFORMIN HYDROCHLORIDE [Suspect]
     Active Substance: METFORMIN HYDROCHLORIDE
     Dosage: 500 MG, BID
  5. ISOSORBIDE DINITRATE [Suspect]
     Active Substance: ISOSORBIDE DINITRATE
     Dosage: 5 MG, BID
  6. ASPIRIN [Suspect]
     Active Substance: ASPIRIN
     Dosage: 100 MG, QD

REACTIONS (11)
  - Cardiomegaly [Fatal]
  - Bradycardia [Fatal]
  - Dyspnoea [Fatal]
  - Palpitations [Fatal]
  - Ventricular extrasystoles [Fatal]
  - Malaise [Fatal]
  - Condition aggravated [Fatal]
  - Hypoglycaemia [Unknown]
  - Cold sweat [Unknown]
  - Loss of consciousness [Unknown]
  - Product prescribing issue [Unknown]
